FAERS Safety Report 4726594-4 (Version None)
Quarter: 2005Q3

REPORT INFORMATION
  Report Type: 
  Country: None (occurrence: None)
  Receive Date: 20050727
  Receipt Date: 20050718
  Transmission Date: 20060218
  Serious: Yes (Hospitalization)
  Sender: FDA-Public Use
  Company Number: US-MERCK-0507USA02251

PATIENT
  Age: 49 Year
  Sex: Female

DRUGS (3)
  1. ALBUTEROL [Concomitant]
     Route: 065
  2. SINGULAIR [Concomitant]
     Route: 065
  3. VIOXX [Suspect]
     Indication: ARTHRITIS
     Route: 048
     Dates: start: 20040101, end: 20041001

REACTIONS (2)
  - ARTERIAL INJURY [None]
  - MYOCARDIAL INFARCTION [None]
